FAERS Safety Report 10622431 (Version 3)
Quarter: 2015Q2

REPORT INFORMATION
  Report Type: Spontaneous
  Country: US (occurrence: US)
  Receive Date: 20141203
  Receipt Date: 20150623
  Transmission Date: 20150821
  Serious: Yes (Hospitalization, Congenital Anomaly, Other)
  Sender: FDA-Public Use
  Company Number: US-ELI_LILLY_AND_COMPANY-US201411010064

PATIENT
  Age: 0 Day

DRUGS (1)
  1. PROZAC [Suspect]
     Active Substance: FLUOXETINE HYDROCHLORIDE
     Indication: DEPRESSION
     Dosage: 20 MG, EACH MORNING
     Route: 064

REACTIONS (28)
  - Deafness [Unknown]
  - Cerebral palsy [Unknown]
  - Aortic valve stenosis [Unknown]
  - Foetal exposure during pregnancy [Recovered/Resolved]
  - Cataract congenital [Unknown]
  - Tachycardia [Unknown]
  - Heart rate decreased [Unknown]
  - Small for dates baby [Unknown]
  - Deformity thorax [Unknown]
  - Ventricular hypertrophy [Unknown]
  - Humerus fracture [Unknown]
  - Tachypnoea [Unknown]
  - Limb malformation [Unknown]
  - Tachypnoea [Recovering/Resolving]
  - Hemiplegia [Unknown]
  - Coarctation of the aorta [Unknown]
  - Hydrocephalus [Unknown]
  - Joint contracture [Unknown]
  - Premature baby [Unknown]
  - Microcephaly [Unknown]
  - Bicuspid aortic valve [Unknown]
  - Congenital naevus [Unknown]
  - Anomaly of external ear congenital [Unknown]
  - Weight increased [Unknown]
  - Congenital hemiparesis [Unknown]
  - Cerebral calcification [Unknown]
  - Cardiomegaly [Unknown]
  - Dysplasia [Unknown]

NARRATIVE: CASE EVENT DATE: 20000721
